FAERS Safety Report 13569733 (Version 3)
Quarter: 2017Q2

REPORT INFORMATION
  Report Type: Spontaneous
  Country: US (occurrence: MT)
  Receive Date: 20170522
  Receipt Date: 20170614
  Transmission Date: 20170830
  Serious: Yes (Hospitalization)
  Sender: FDA-Public Use
  Company Number: US-SUNOVION-2017SUN002168

PATIENT

DRUGS (9)
  1. GLYCOPYRROLATE. [Suspect]
     Active Substance: GLYCOPYRROLATE
     Indication: ASTHMA
     Dosage: UNK, BID
     Route: 055
  2. FORADIL [Suspect]
     Active Substance: FORMOTEROL FUMARATE
     Indication: ASTHMA
     Dosage: 1 DF, BID
     Route: 055
  3. MONTELUKAST [Concomitant]
     Active Substance: MONTELUKAST SODIUM
     Dosage: UNK
  4. METFORMIN [Concomitant]
     Active Substance: METFORMIN HYDROCHLORIDE
  5. RHINOLAST [Concomitant]
     Active Substance: AZELASTINE HYDROCHLORIDE
  6. VENTOLIN [Concomitant]
     Active Substance: ALBUTEROL SULFATE
  7. FLIXOTIDE [Concomitant]
     Active Substance: FLUTICASONE PROPIONATE
  8. AVAMYS [Concomitant]
     Active Substance: FLUTICASONE FUROATE
  9. GLYCOPYRROLATE. [Suspect]
     Active Substance: GLYCOPYRROLATE
     Dosage: 1 DF, QD (1-0-0)
     Route: 055

REACTIONS (8)
  - Nasal congestion [Recovering/Resolving]
  - Productive cough [Unknown]
  - Asthma [Recovering/Resolving]
  - Pulmonary sensitisation [Recovering/Resolving]
  - Dyspnoea at rest [Unknown]
  - Inappropriate schedule of drug administration [Unknown]
  - Product use in unapproved indication [Unknown]
  - Dyspnoea [Not Recovered/Not Resolved]

NARRATIVE: CASE EVENT DATE: 201705
